FAERS Safety Report 18420063 (Version 2)
Quarter: 2020Q4

REPORT INFORMATION
  Report Type: Spontaneous
  Country: US (occurrence: US)
  Receive Date: 20201023
  Receipt Date: 20201217
  Transmission Date: 20210114
  Serious: Yes (Death, Hospitalization)
  Sender: FDA-Public Use
  Company Number: US-FRESENIUS KABI-FK202011103

PATIENT
  Age: 72 Year
  Sex: Female

DRUGS (8)
  1. CALCIUM FOLINATE [Suspect]
     Active Substance: LEUCOVORIN CALCIUM
     Indication: GALLBLADDER CANCER METASTATIC
     Route: 042
     Dates: start: 20200915, end: 20200929
  2. CALCIUM FOLINATE [Suspect]
     Active Substance: LEUCOVORIN CALCIUM
     Dosage: 2ND CYCLE OF CHEMOTHERAPY ON 29/SEP/2020
     Route: 042
     Dates: start: 20200929
  3. FLUOROURACIL (MANUFACTURER UNKNOWN) [Suspect]
     Active Substance: FLUOROURACIL
     Indication: GALLBLADDER CANCER METASTATIC
     Route: 042
     Dates: start: 20200915, end: 20200929
  4. IRINOTECAN MONOHYDROCHLORIDE TRIHYDRATE [Suspect]
     Active Substance: IRINOTECAN HYDROCHLORIDE
     Dosage: 2ND CYCLE OF CHEMOTHERAPY ON 29/SEP/2020
     Route: 042
     Dates: start: 20200929
  5. NIVOLUMAB [Suspect]
     Active Substance: NIVOLUMAB
     Dosage: 2ND CYCLE OF CHEMOTHERAPY ON 29/SEP/2020
     Route: 042
     Dates: start: 20200929
  6. FLUOROURACIL (MANUFACTURER UNKNOWN) [Suspect]
     Active Substance: FLUOROURACIL
     Dosage: 2ND CYCLE OF CHEMOTHERAPY ON 29/SEP/2020
     Route: 042
     Dates: start: 20200929
  7. IRINOTECAN MONOHYDROCHLORIDE TRIHYDRATE [Suspect]
     Active Substance: IRINOTECAN HYDROCHLORIDE
     Indication: GALLBLADDER CANCER METASTATIC
     Route: 042
     Dates: start: 20200915, end: 20200929
  8. NIVOLUMAB [Suspect]
     Active Substance: NIVOLUMAB
     Indication: GALLBLADDER CANCER METASTATIC
     Route: 042
     Dates: start: 20200915, end: 20200929

REACTIONS (5)
  - Decreased appetite [Unknown]
  - Pneumonia [Unknown]
  - Nausea [Unknown]
  - Enterocolitis infectious [Not Recovered/Not Resolved]
  - Diarrhoea [Unknown]

NARRATIVE: CASE EVENT DATE: 20201005
